FAERS Safety Report 12742886 (Version 1)
Quarter: 2016Q3

REPORT INFORMATION
  Report Type: Spontaneous
  Country: US (occurrence: US)
  Receive Date: 20160914
  Receipt Date: 20160914
  Transmission Date: 20161109
  Serious: Yes (Hospitalization, Other)
  Sender: FDA-Public Use
  Company Number: US-SAOL THERAPEUTICS-2016SAO00215

PATIENT
  Age: 27 Year
  Sex: Female
  Weight: 72.56 kg

DRUGS (7)
  1. COMPOUNDED BACLOFEN [Suspect]
     Active Substance: BACLOFEN
     Indication: MUSCLE SPASTICITY
     Dosage: 94 ?G, \DAY
     Route: 037
     Dates: start: 2004
  2. DIAZEPAM. [Concomitant]
     Active Substance: DIAZEPAM
  3. COMPOUNDED BACLOFEN [Suspect]
     Active Substance: BACLOFEN
     Indication: MUSCLE SPASTICITY
     Dosage: 82 ?G/DAY
     Route: 037
  4. AMITRIPTYLINE [Concomitant]
     Active Substance: AMITRIPTYLINE
  5. PREGABALIN. [Concomitant]
     Active Substance: PREGABALIN
  6. METOPROLOL. [Concomitant]
     Active Substance: METOPROLOL
     Dosage: UNK
     Dates: start: 2004
  7. PROVIGIL [Concomitant]
     Active Substance: MODAFINIL

REACTIONS (10)
  - Calculus bladder [Unknown]
  - Sepsis [Unknown]
  - Ulcer [Unknown]
  - Blood culture positive [Unknown]
  - Pyelonephritis [Unknown]
  - Nephrolithiasis [Unknown]
  - Nephrotic syndrome [Unknown]
  - Urinary tract infection [Unknown]
  - Calculus urethral [Unknown]
  - Hypotonia [Recovering/Resolving]

NARRATIVE: CASE EVENT DATE: 20160621
